FAERS Safety Report 6371773-6 (Version None)
Quarter: 2009Q3

REPORT INFORMATION
  Report Type: 
  Country: None (occurrence: None)
  Receive Date: 20090918
  Receipt Date: 20090918
  Transmission Date: 20100115
  Serious: No
  Sender: FDA-Public Use
  Company Number: None

PATIENT
  Age: 41 Year
  Sex: Male
  Weight: 100 kg

DRUGS (5)
  1. AVASTIN [Suspect]
     Indication: BRAIN NEOPLASM
     Dosage: 1000MG EVERY2 WEEKS IV
     Route: 042
     Dates: start: 20090903
  2. AVASTIN [Suspect]
     Indication: NEOPLASM PROGRESSION
     Dosage: 1000MG EVERY2 WEEKS IV
     Route: 042
     Dates: start: 20090903
  3. AVASTIN [Suspect]
     Indication: BRAIN NEOPLASM
     Dosage: 1000MG EVERY2 WEEKS IV
     Route: 042
     Dates: start: 20090917
  4. AVASTIN [Suspect]
     Indication: NEOPLASM PROGRESSION
     Dosage: 1000MG EVERY2 WEEKS IV
     Route: 042
     Dates: start: 20090917
  5. AVASTIN [Suspect]

REACTIONS (4)
  - CHILLS [None]
  - PALLOR [None]
  - PERIPHERAL COLDNESS [None]
  - POOR PERIPHERAL CIRCULATION [None]
